FAERS Safety Report 16894631 (Version 2)
Quarter: 2019Q4

REPORT INFORMATION
  Report Type: Spontaneous
  Country: US (occurrence: US)
  Receive Date: 20191008
  Receipt Date: 20191014
  Transmission Date: 20200122
  Serious: No
  Sender: FDA-Public Use
  Company Number: US-PFIZER INC-2019433708

PATIENT
  Age: 64 Year
  Sex: Female

DRUGS (1)
  1. NEURONTIN [Suspect]
     Active Substance: GABAPENTIN
     Dosage: 300 MG, 1X/DAY (1 PO QHS (BEFORE BED))
     Route: 048

REACTIONS (1)
  - Drug ineffective [Unknown]
